FAERS Safety Report 9150382 (Version 1)
Quarter: 2013Q1

REPORT INFORMATION
  Report Type: Spontaneous
  Country: US (occurrence: US)
  Receive Date: 20130308
  Receipt Date: 20130308
  Transmission Date: 20140127
  Serious: No
  Sender: FDA-Public Use
  Company Number: US-GLAXOSMITHKLINE-A0981516A

PATIENT
  Age: 58 Year
  Sex: Male

DRUGS (2)
  1. NICORETTE CINNAMON SURGE [Suspect]
     Indication: PRODUCT USED FOR UNKNOWN INDICATION
  2. NICORETTE [Suspect]
     Indication: PRODUCT USED FOR UNKNOWN INDICATION

REACTIONS (5)
  - Lip discolouration [Not Recovered/Not Resolved]
  - Dizziness [Not Recovered/Not Resolved]
  - Intentional drug misuse [Not Recovered/Not Resolved]
  - Lip disorder [Recovered/Resolved]
  - Product quality issue [Unknown]
